FAERS Safety Report 20533847 (Version 1)
Quarter: 2022Q1

REPORT INFORMATION
  Report Type: Report from Study
  Country: HK (occurrence: HK)
  Receive Date: 20220301
  Receipt Date: 20220301
  Transmission Date: 20220424
  Serious: Yes (Hospitalization)
  Sender: FDA-Public Use
  Company Number: HK-CELGENE-HKG-20220206573

PATIENT
  Age: 72 Year
  Sex: Female
  Weight: 63 kg

DRUGS (16)
  1. POMALIDOMIDE [Suspect]
     Active Substance: POMALIDOMIDE
     Indication: Plasma cell myeloma
     Dosage: 4 MILLIGRAM
     Route: 048
     Dates: start: 20211220, end: 20220109
  2. CYCLOPHOSPHAMIDE [Suspect]
     Active Substance: CYCLOPHOSPHAMIDE
     Indication: Plasma cell myeloma
     Route: 065
  3. DEXAMETHASONE [Suspect]
     Active Substance: DEXAMETHASONE
     Indication: Plasma cell myeloma
     Route: 065
  4. ACYCLOVIR [Concomitant]
     Active Substance: ACYCLOVIR
     Indication: Antiviral prophylaxis
     Dosage: 400 MILLIGRAM
     Route: 048
     Dates: start: 20210802, end: 20220121
  5. ASPIRIN [Concomitant]
     Active Substance: ASPIRIN
     Indication: Thrombosis prophylaxis
     Dosage: 80 MILLIGRAM
     Route: 048
     Dates: start: 20210802, end: 20220201
  6. COTRIMOXAZOLE [Concomitant]
     Active Substance: SULFAMETHOXAZOLE\TRIMETHOPRIM
     Indication: Antiviral prophylaxis
     Dosage: 1920 MILLIGRAM
     Route: 048
     Dates: start: 20210802
  7. GLICLAZIDE [Concomitant]
     Active Substance: GLICLAZIDE
     Indication: Type 2 diabetes mellitus
     Dosage: 80 MILLIGRAM
     Route: 048
     Dates: start: 20210823
  8. Metochlopramide HCL [Concomitant]
     Indication: Gastrooesophageal reflux disease
     Dosage: 30 MILLIGRAM
     Route: 048
     Dates: start: 20211122, end: 20211219
  9. PANTOPRAZOLE [Concomitant]
     Active Substance: PANTOPRAZOLE
     Indication: Gastrooesophageal reflux disease
     Dosage: 20 MILLIGRAM
     Route: 048
     Dates: start: 20210802, end: 20220113
  10. ACETAMINOPHEN [Concomitant]
     Active Substance: ACETAMINOPHEN
     Indication: Analgesic therapy
     Dosage: 2000 MILLIGRAM
     Route: 048
     Dates: start: 20210927, end: 20211226
  11. PREGABALIN [Concomitant]
     Active Substance: PREGABALIN
     Indication: Analgesic therapy
     Dosage: 75 MILLIGRAM
     Route: 048
     Dates: start: 20210927, end: 20211226
  12. Potassium chloride SR tablet [Concomitant]
     Indication: Hypokalaemia
     Dosage: 600 MILLIGRAM
     Route: 048
     Dates: start: 20210802
  13. PROCHLORPERAZINE MALEATE [Concomitant]
     Active Substance: PROCHLORPERAZINE MALEATE
     Indication: Prophylaxis of nausea and vomiting
     Dosage: 15 MILLIGRAM
     Route: 048
     Dates: start: 20211122, end: 20211219
  14. FILGRASTIM [Concomitant]
     Active Substance: FILGRASTIM
     Indication: Prophylaxis
     Dosage: 4.2857 INTERNATIONAL UNITS MILLIONS
     Route: 058
     Dates: start: 20211125, end: 20220217
  15. CELECOXIB [Concomitant]
     Active Substance: CELECOXIB
     Indication: Analgesic therapy
     Route: 048
     Dates: start: 20211123, end: 20220115
  16. ALBUTEROL SULFATE [Concomitant]
     Active Substance: ALBUTEROL SULFATE
     Indication: Dyspnoea
     Route: 055
     Dates: start: 20211206

REACTIONS (1)
  - Arthropathy [Recovered/Resolved with Sequelae]

NARRATIVE: CASE EVENT DATE: 20211226
